FAERS Safety Report 10473376 (Version 3)
Quarter: 2014Q4

REPORT INFORMATION
  Report Type: Spontaneous
  Country: US (occurrence: BR)
  Receive Date: 20140924
  Receipt Date: 20141111
  Transmission Date: 20150528
  Serious: No
  Sender: FDA-Public Use
  Company Number: BR-FRI-1000070910

PATIENT
  Sex: Male

DRUGS (5)
  1. FLUIMUCIL D [Concomitant]
  2. KLARICID [Concomitant]
     Active Substance: CLARITHROMYCIN
  3. SPIRIVA [Concomitant]
     Active Substance: TIOTROPIUM BROMIDE MONOHYDRATE
  4. ROFLUMILAST [Suspect]
     Active Substance: ROFLUMILAST
     Indication: CHRONIC OBSTRUCTIVE PULMONARY DISEASE
     Dosage: 1 TABLET, EACH TWO DAYS
     Route: 048
     Dates: start: 201409
  5. ABRILAR [Concomitant]

REACTIONS (1)
  - Vision blurred [Recovering/Resolving]
